FAERS Safety Report 20090304 (Version 1)
Quarter: 2021Q4

REPORT INFORMATION
  Report Type: Report from Study
  Country: US (occurrence: US)
  Receive Date: 20211119
  Receipt Date: 20211119
  Transmission Date: 20220303
  Serious: Yes (Hospitalization)
  Sender: FDA-Public Use
  Company Number: US-JNJFOC-20211131826

PATIENT
  Age: 45 Year
  Sex: Female

DRUGS (3)
  1. SPRAVATO [Suspect]
     Active Substance: ESKETAMINE
     Indication: Depression
     Dosage: 56 MG TOTAL 4 DOSES.
     Dates: start: 20210810, end: 20210826
  2. SPRAVATO [Suspect]
     Active Substance: ESKETAMINE
     Dosage: 84 MG TOTAL 6 DOSES.
     Dates: start: 20210830, end: 20211025
  3. SPRAVATO [Suspect]
     Active Substance: ESKETAMINE
     Dosage: 84 MG TOTAL ONE DOSE.
     Dates: start: 20211103

REACTIONS (2)
  - Mental disorder [Unknown]
  - Suicidal ideation [Unknown]
